FAERS Safety Report 7626309-6 (Version None)
Quarter: 2011Q3

REPORT INFORMATION
  Report Type: 
  Country: None (occurrence: None)
  Receive Date: 20110721
  Receipt Date: 20110714
  Transmission Date: 20111222
  Serious: Yes (Death)
  Sender: FDA-Public Use
  Company Number: PHHY2011MX63518

PATIENT
  Sex: Female

DRUGS (2)
  1. METFORMIN HCL [Concomitant]
     Indication: DIABETES MELLITUS
     Dosage: 2 DF, UNK
  2. RASILEZ HCT [Suspect]
     Indication: HYPERTENSION
     Dosage: 2 DF, UNK
     Dates: start: 20110601

REACTIONS (1)
  - DEATH [None]
